FAERS Safety Report 4772403-7 (Version None)
Quarter: 2005Q3

REPORT INFORMATION
  Report Type: 
  Country: None (occurrence: None)
  Receive Date: 20050919
  Receipt Date: 20050602
  Transmission Date: 20060218
  Serious: No
  Sender: FDA-Public Use
  Company Number: US-BRISTOL-MYERS SQUIBB COMPANY-12991824

PATIENT
  Age: 75 Year
  Sex: Female
  Weight: 70 kg

DRUGS (5)
  1. KENALOG-40 [Suspect]
     Indication: OSTEOARTHRITIS
     Dates: start: 20050501
  2. AMARYL [Concomitant]
  3. METFORMIN HCL [Concomitant]
  4. CLONAZEPAM [Concomitant]
  5. PROTONIX [Concomitant]

REACTIONS (2)
  - BLOOD GLUCOSE FLUCTUATION [None]
  - BLOOD GLUCOSE INCREASED [None]
